FAERS Safety Report 21927120 (Version 1)
Quarter: 2023Q1

REPORT INFORMATION
  Report Type: Spontaneous
  Country: US (occurrence: US)
  Receive Date: 20230130
  Receipt Date: 20230130
  Transmission Date: 20230418
  Serious: No
  Sender: FDA-Public Use
  Company Number: US-SAREPTA THERAPEUTICS INC.-SRP2022-002452

PATIENT
  Age: 9 Year
  Sex: Male
  Weight: 27.6 kg

DRUGS (2)
  1. AMONDYS 45 [Suspect]
     Active Substance: CASIMERSEN
     Indication: Duchenne muscular dystrophy
     Dosage: 775 MILLIGRAM, WEEKLY
     Route: 042
     Dates: start: 20220505
  2. EMFLAZA [Concomitant]
     Active Substance: DEFLAZACORT
     Indication: Duchenne muscular dystrophy
     Dosage: 68.25 MILLIGRAM, SAT/SUN QD
     Route: 048
     Dates: start: 2020

REACTIONS (2)
  - Protein urine present [Recovered/Resolved]
  - Urine protein/creatinine ratio abnormal [Recovered/Resolved]

NARRATIVE: CASE EVENT DATE: 20220808
